FAERS Safety Report 12902456 (Version 2)
Quarter: 2016Q4

REPORT INFORMATION
  Report Type: Spontaneous
  Country: JP (occurrence: JP)
  Receive Date: 20161102
  Receipt Date: 20161223
  Transmission Date: 20170207
  Serious: Yes (Other)
  Sender: FDA-Public Use
  Company Number: JP-ROCHE-1848923

PATIENT
  Age: 78 Year
  Sex: Male

DRUGS (7)
  1. VISUDYNE [Suspect]
     Active Substance: VERTEPORFIN
     Indication: AGE-RELATED MACULAR DEGENERATION
     Dosage: UNK
     Route: 042
     Dates: start: 201407
  2. LUCENTIS [Suspect]
     Active Substance: RANIBIZUMAB
     Dosage: UNK, 3RD INJECTION IN LEFT EYE
     Route: 031
     Dates: start: 201605
  3. LUCENTIS [Suspect]
     Active Substance: RANIBIZUMAB
     Dosage: UNK, 1ST INJECTION IN RIGHT EYE
     Route: 031
  4. LUCENTIS [Suspect]
     Active Substance: RANIBIZUMAB
     Indication: AGE-RELATED MACULAR DEGENERATION
     Dosage: UNK, 1ST INJECTION IN LEFT EYE
     Route: 031
     Dates: start: 201510
  5. LUCENTIS [Suspect]
     Active Substance: RANIBIZUMAB
     Indication: MACULAR DEGENERATION
     Dosage: UNK, 2ND INJECTION IN LEFT EYE
     Route: 031
  6. LUCENTIS [Suspect]
     Active Substance: RANIBIZUMAB
     Dosage: UNK, 4TH INJECTION IN LEFT EYE
     Route: 031
     Dates: start: 201608
  7. VISUDYNE [Suspect]
     Active Substance: VERTEPORFIN
     Indication: AGE-RELATED MACULAR DEGENERATION
     Route: 042

REACTIONS (8)
  - Age-related macular degeneration [Unknown]
  - Retinal detachment [Unknown]
  - Visual acuity reduced [Unknown]
  - Retinal oedema [Unknown]
  - Retinal haemorrhage [Unknown]
  - Detachment of retinal pigment epithelium [Unknown]
  - Macular degeneration [Unknown]
  - Cystoid macular oedema [Unknown]

NARRATIVE: CASE EVENT DATE: 201510
